FAERS Safety Report 26118616 (Version 2)
Quarter: 2025Q4

REPORT INFORMATION
  Report Type: Report from Study
  Country: US (occurrence: US)
  Receive Date: 20251203
  Receipt Date: 20251205
  Transmission Date: 20260118
  Serious: Yes (Other)
  Sender: JOHNSON AND JOHNSON
  Company Number: US-JNJFOC-20251159279

PATIENT

DRUGS (5)
  1. TECLISTAMAB [Suspect]
     Active Substance: TECLISTAMAB
     Indication: Plasma cell myeloma refractory
     Dosage: DAY 1
     Route: 058
  2. TECLISTAMAB [Suspect]
     Active Substance: TECLISTAMAB
     Dosage: DAY 4
     Route: 058
  3. TECLISTAMAB [Suspect]
     Active Substance: TECLISTAMAB
     Dosage: DAY 7
     Route: 058
  4. TECLISTAMAB [Suspect]
     Active Substance: TECLISTAMAB
     Route: 058
  5. TECLISTAMAB [Suspect]
     Active Substance: TECLISTAMAB
     Route: 058

REACTIONS (11)
  - Neurotoxicity [Unknown]
  - Gastric cancer [Unknown]
  - Cytokine release syndrome [Unknown]
  - Neutropenia [Unknown]
  - Leukopenia [Unknown]
  - Immune effector cell-associated neurotoxicity syndrome [Unknown]
  - Febrile neutropenia [Unknown]
  - Thrombocytopenia [Unknown]
  - Anaemia [Unknown]
  - Infection [Unknown]
  - Hepatic enzyme increased [Unknown]
